FAERS Safety Report 8037248-3 (Version None)
Quarter: 2012Q1

REPORT INFORMATION
  Report Type: 
  Country: None (occurrence: None)
  Receive Date: 20120111
  Receipt Date: 20120106
  Transmission Date: 20120608
  Serious: Yes (Other)
  Sender: FDA-Public Use
  Company Number: GB-PFIZER INC-2012005466

PATIENT
  Age: 74 Year
  Sex: Female
  Weight: 60.328 kg

DRUGS (9)
  1. PROCHLORPERAZINE [Concomitant]
     Dosage: UNK
     Dates: start: 20111107, end: 20111114
  2. RAMIPRIL [Concomitant]
     Dosage: UNK
     Dates: start: 20111013
  3. SUDOCREM [Concomitant]
     Dosage: UNK
     Dates: start: 20110927, end: 20111004
  4. TRIMETHOPRIM [Concomitant]
     Dosage: UNK
     Dates: start: 20110905
  5. CLOTRIMAZOLE [Concomitant]
     Dosage: UNK
     Dates: start: 20110927, end: 20111007
  6. CLOTRIMAZOLE [Concomitant]
     Dosage: UNK
     Dates: start: 20111115, end: 20111125
  7. AMLODIPINE BESYLATE [Suspect]
     Dosage: UNK
     Dates: start: 20111122
  8. CLOTRIMAZOLE [Concomitant]
     Dosage: UNK
     Dates: start: 20111209, end: 20111219
  9. HUMALOG [Concomitant]
     Dosage: UNK
     Dates: start: 20110927, end: 20111025

REACTIONS (2)
  - DIZZINESS [None]
  - VISION BLURRED [None]
